FAERS Safety Report 13042505 (Version 1)
Quarter: 2016Q4

REPORT INFORMATION
  Report Type: Not Available
  Country: None (occurrence: US)
  Receive Date: 20161219
  Receipt Date: 20161219
  Transmission Date: 20170207
  Serious: Yes (Hospitalization, Other)
  Sender: FDA-Public Use
  Company Number: US-AKORN-45451

PATIENT
  Sex: Female

DRUGS (1)
  1. PROGESTERONE CAPSULES 200MG [Suspect]
     Active Substance: PROGESTERONE

REACTIONS (2)
  - Drug ineffective [None]
  - Product coating issue [None]
